FAERS Safety Report 8147637 (Version 2)
Quarter: 2013Q2

REPORT INFORMATION
  Report Type: Spontaneous
  Country: US (occurrence: US)
  Receive Date: 20110922
  Receipt Date: 20130409
  Transmission Date: 20140414
  Serious: Yes (Other)
  Sender: FDA-Public Use
  Company Number: US-ASTRAZENECA-2011SE12621

PATIENT
  Age: 38 Year
  Sex: Male

DRUGS (10)
  1. SEROQUEL [Suspect]
     Route: 048
     Dates: start: 20060127
  2. BUPROPION HCL [Concomitant]
     Dates: start: 20060607
  3. BUPROPION HCL [Concomitant]
     Dates: start: 20060708
  4. LUNESTA [Concomitant]
     Dates: start: 20060607
  5. LEXAPRO [Concomitant]
     Dates: start: 20060926
  6. FEXOFENADINE HCL [Concomitant]
     Dates: start: 20080213
  7. ZOLPIDEM TARTRATE [Concomitant]
     Dates: start: 20100612
  8. SIMVASTATIN [Concomitant]
     Dates: start: 20100807
  9. LAMICTAL [Concomitant]
     Dates: start: 20060112
  10. LAMICTAL [Concomitant]
     Dates: start: 20060607

REACTIONS (3)
  - Pancreatitis [Unknown]
  - Diabetic coma [Unknown]
  - Type 2 diabetes mellitus [Unknown]
